FAERS Safety Report 19519940 (Version 2)
Quarter: 2021Q3

REPORT INFORMATION
  Report Type: Spontaneous
  Country: JP (occurrence: JP)
  Receive Date: 20210712
  Receipt Date: 20210901
  Transmission Date: 20211014
  Serious: Yes (Hospitalization, Other)
  Sender: FDA-Public Use
  Company Number: JP-SA-2021SA226676

PATIENT
  Age: 72 Year
  Sex: Male

DRUGS (6)
  1. LEVOFLOXACIN. [Concomitant]
     Active Substance: LEVOFLOXACIN
     Indication: HYPERTENSION
     Route: 065
  2. CARBOCYSTEINE [Concomitant]
     Active Substance: CARBOCYSTEINE
     Indication: HYPERTENSION
     Route: 065
  3. CISPLATIN. [Suspect]
     Active Substance: CISPLATIN
     Indication: LUNG SQUAMOUS CELL CARCINOMA STAGE III
     Dosage: 80 MG/M2 ON DAY 1
     Route: 065
  4. BROTIZOLAM [Concomitant]
     Active Substance: BROTIZOLAM
     Indication: HYPERTENSION
     Route: 065
  5. DOCETAXEL. [Suspect]
     Active Substance: DOCETAXEL
     Indication: LUNG SQUAMOUS CELL CARCINOMA STAGE III
     Dosage: 60 MG/M2 ON DAY 1, EVERY 3 WEEKS
     Route: 065
  6. OLMESARTAN [Concomitant]
     Active Substance: OLMESARTAN
     Indication: HYPERTENSION
     Route: 065

REACTIONS (7)
  - Palpable purpura [Recovered/Resolved]
  - Henoch-Schonlein purpura [Recovered/Resolved]
  - Nephrotic syndrome [Recovered/Resolved]
  - Pleural effusion [Recovered/Resolved]
  - Hypoalbuminaemia [Recovered/Resolved]
  - Proteinuria [Recovered/Resolved]
  - Haematuria [Recovered/Resolved]
